FAERS Safety Report 15853126 (Version 2)
Quarter: 2019Q1

REPORT INFORMATION
  Report Type: Spontaneous
  Country: BR (occurrence: BR)
  Receive Date: 20190122
  Receipt Date: 20190124
  Transmission Date: 20190417
  Serious: Yes (Life-Threatening, Other)
  Sender: FDA-Public Use
  Company Number: PHHY2019BR012238

PATIENT
  Sex: Female
  Weight: 65 kg

DRUGS (4)
  1. RIVOTRIL [Concomitant]
     Active Substance: CLONAZEPAM
     Indication: SLEEP DISORDER
     Dosage: 10 DRP, QD (AT NIGHT) (MANY YEARS AGO)
     Route: 048
  2. SIMVASTATIN. [Suspect]
     Active Substance: SIMVASTATIN
     Indication: PRODUCT USED FOR UNKNOWN INDICATION
     Dosage: UNK
     Route: 065
  3. VALSARTAN. [Suspect]
     Active Substance: VALSARTAN
     Indication: HYPERTENSION
     Dosage: 1 DF, QD (IN THE MORNING)
     Route: 048
     Dates: start: 201901
  4. DIOVAN [Suspect]
     Active Substance: VALSARTAN
     Indication: HYPERTENSION
     Dosage: 1 DF, QD (IN THE MORNING)
     Route: 048
     Dates: start: 2013, end: 201812

REACTIONS (16)
  - Micturition urgency [Recovering/Resolving]
  - Musculoskeletal pain [Not Recovered/Not Resolved]
  - Blood glucose increased [Unknown]
  - Malaise [Recovering/Resolving]
  - Decreased appetite [Not Recovered/Not Resolved]
  - Tremor [Recovering/Resolving]
  - Hypersensitivity [Not Recovered/Not Resolved]
  - Dizziness [Recovering/Resolving]
  - Blood cholesterol increased [Unknown]
  - Renal pain [Not Recovered/Not Resolved]
  - Alopecia [Not Recovered/Not Resolved]
  - Vomiting [Recovering/Resolving]
  - Apparent death [Not Recovered/Not Resolved]
  - Fall [Recovering/Resolving]
  - Dysentery [Recovered/Resolved]
  - Ear pruritus [Not Recovered/Not Resolved]

NARRATIVE: CASE EVENT DATE: 2018
